FAERS Safety Report 15465724 (Version 3)
Quarter: 2019Q1

REPORT INFORMATION
  Report Type: Report from Study
  Country: US (occurrence: US)
  Receive Date: 20181004
  Receipt Date: 20190111
  Transmission Date: 20190417
  Serious: Yes (Hospitalization)
  Sender: FDA-Public Use
  Company Number: PHEH2018US041119

PATIENT
  Age: 29 Year
  Sex: Male
  Weight: 130.4 kg

DRUGS (2)
  1. GILENYA [Suspect]
     Active Substance: FINGOLIMOD HYDROCHLORIDE
     Dosage: 0.5 MG, QD
     Route: 048
     Dates: start: 20180921
  2. GILENYA [Suspect]
     Active Substance: FINGOLIMOD HYDROCHLORIDE
     Indication: MULTIPLE SCLEROSIS
     Dosage: 0.5 MG, QD
     Route: 048
     Dates: start: 20180831

REACTIONS (10)
  - Heart rate decreased [Unknown]
  - Insomnia [Unknown]
  - Multiple sclerosis relapse [Unknown]
  - Blindness [Unknown]
  - Tonsillitis [Unknown]
  - Hypoaesthesia [Recovered/Resolved]
  - Pyrexia [Unknown]
  - Candida infection [Unknown]
  - Diarrhoea [Unknown]
  - Influenza [Unknown]

NARRATIVE: CASE EVENT DATE: 20180921
